FAERS Safety Report 13446853 (Version 1)
Quarter: 2017Q2

REPORT INFORMATION
  Report Type: Spontaneous
  Country: US (occurrence: US)
  Receive Date: 20170417
  Receipt Date: 20170417
  Transmission Date: 20170830
  Serious: No
  Sender: FDA-Public Use
  Company Number: US-PFIZER INC-2017157130

PATIENT
  Age: 30 Year
  Sex: Female

DRUGS (5)
  1. DOXYCYCLINE HYCLATE. [Suspect]
     Active Substance: DOXYCYCLINE HYCLATE
     Dosage: UNK
  2. ALFUZOSIN [Suspect]
     Active Substance: ALFUZOSIN
     Dosage: UNK
  3. BLEPH-10 [Suspect]
     Active Substance: SULFACETAMIDE SODIUM
     Dosage: UNK
  4. AMOXICILLIN. [Suspect]
     Active Substance: AMOXICILLIN
     Dosage: UNK
  5. KEFLEX [Suspect]
     Active Substance: CEPHALEXIN
     Dosage: UNK

REACTIONS (1)
  - Drug hypersensitivity [Unknown]
